FAERS Safety Report 9030265 (Version 3)
Quarter: 2013Q4

REPORT INFORMATION
  Report Type: Spontaneous
  Country: GB (occurrence: GB)
  Receive Date: 20130122
  Receipt Date: 20131018
  Transmission Date: 20140711
  Serious: Yes (Hospitalization)
  Sender: FDA-Public Use
  Company Number: GB-ASTRAZENECA-2013SE02577

PATIENT
  Age: 47 Year
  Sex: Female

DRUGS (12)
  1. QUETIAPINE [Suspect]
     Indication: PRODUCT USED FOR UNKNOWN INDICATION
     Route: 048
  2. ATORVASTATIN (ACTAVIS) [Suspect]
     Indication: HEREDITARY DISORDER
     Route: 065
     Dates: start: 20121218
  3. CALCIUM PHOSPHATE [Concomitant]
  4. CALCIUM SODIUM LACTATE [Concomitant]
  5. CIPRALEX [Concomitant]
     Dosage: ESCITALOPRAM OXALATE
  6. FOLIC ACID [Concomitant]
  7. LITHIUM [Concomitant]
  8. PIRITON [Concomitant]
  9. PREDNISOLONE [Concomitant]
  10. VITAMIN B 12 [Concomitant]
  11. UNSPECIFIED STATINS [Concomitant]
  12. VITAMIN D SUBSTANCES [Concomitant]

REACTIONS (4)
  - Dyspnoea [Unknown]
  - Swelling face [Unknown]
  - Loss of consciousness [Unknown]
  - Drug hypersensitivity [Unknown]
